FAERS Safety Report 21382507 (Version 1)
Quarter: 2022Q3

REPORT INFORMATION
  Report Type: Other
  Country: CN (occurrence: None)
  Receive Date: 20220927
  Receipt Date: 20220927
  Transmission Date: 20221027
  Serious: Yes (Other)
  Sender: FDA-Public Use
  Company Number: CN-ROCHE-3183206

PATIENT
  Age: 25 Year
  Sex: Female
  Weight: 60 kg

DRUGS (10)
  1. TOCILIZUMAB [Suspect]
     Active Substance: TOCILIZUMAB
     Indication: Still^s disease
     Dosage: THE PATIENT WAS GIVEN TOCILIZUMAB 8 MG/KG (THIS PATIENT WEIGHED 60 KG AND WAS GIVEN 480 MG) VIA INTR
     Route: 041
  2. METHYLPREDNISOLONE [Concomitant]
     Active Substance: METHYLPREDNISOLONE
     Indication: Still^s disease
     Dosage: PULSE THERAPY WAS GIVEN FOR 3 DAYS
     Route: 041
  3. METHYLPREDNISOLONE [Concomitant]
     Active Substance: METHYLPREDNISOLONE
     Dosage: ADJUSTED TO 500 MG PULSE THERAPY FOR 4 DAYS
     Route: 041
  4. METHYLPREDNISOLONE [Concomitant]
     Active Substance: METHYLPREDNISOLONE
     Dosage: REDUCED TO 160 MG INTRAVENOUS DRIP DAILY FOR 6 DAYS
     Route: 041
  5. METHYLPREDNISOLONE [Concomitant]
     Active Substance: METHYLPREDNISOLONE
     Dosage: ONCE PER DAY
     Route: 041
  6. BETAMETHASONE [Concomitant]
     Active Substance: BETAMETHASONE
     Route: 041
  7. ACECLOFENAC [Concomitant]
     Active Substance: ACECLOFENAC
     Route: 048
  8. IMMUNE GLOBULIN NOS [Concomitant]
     Active Substance: IMMUNE GLOBULIN NOS
     Dosage: WAS GIVEN FOR 5 DAYS
     Route: 041
  9. ETOPOSIDE [Concomitant]
     Active Substance: ETOPOSIDE
  10. CYCLOSPORINE [Concomitant]
     Active Substance: CYCLOSPORINE
     Route: 048

REACTIONS (2)
  - Haemophagocytic lymphohistiocytosis [Recovering/Resolving]
  - Off label use [Unknown]

NARRATIVE: CASE EVENT DATE: 20150101
